FAERS Safety Report 17288087 (Version 3)
Quarter: 2020Q1

REPORT INFORMATION
  Report Type: Spontaneous
  Country: JP (occurrence: JP)
  Receive Date: 20200120
  Receipt Date: 20200130
  Transmission Date: 20200409
  Serious: Yes (Hospitalization, Other)
  Sender: FDA-Public Use
  Company Number: JP-ROCHE-2522864

PATIENT
  Age: 65 Year
  Sex: Female

DRUGS (1)
  1. HERCEPTIN [Suspect]
     Active Substance: TRASTUZUMAB
     Indication: BREAST CANCER
     Dosage: DOSAGE IS UNCERTAIN. ?12 COURSE ENFORCEMENT
     Route: 041

REACTIONS (5)
  - Cardiac tamponade [Unknown]
  - Superior vena cava syndrome [Unknown]
  - Malignant pleural effusion [Unknown]
  - Pericarditis [Unknown]
  - Metastases to lung [Unknown]

NARRATIVE: CASE EVENT DATE: 201905
